FAERS Safety Report 9804142 (Version 3)
Quarter: 2014Q1

REPORT INFORMATION
  Report Type: Spontaneous
  Country: US (occurrence: None)
  Receive Date: 20140106
  Receipt Date: 20140131
  Transmission Date: 20141002
  Serious: Yes (Hospitalization, Other)
  Sender: FDA-Public Use
  Company Number: ADR-2014-00003

PATIENT
  Age: 49 Year
  Sex: Female

DRUGS (3)
  1. LIORESAL INTRATHECAL (BACLOFEN INJECTION) 500 MCG/ML [Suspect]
     Indication: MUSCLE SPASTICITY
     Dosage: MINIMUM RATE
     Dates: start: 20131230
  2. BACLOFEN [Suspect]
     Route: 037
     Dates: end: 20131230
  3. DILAUDID (HYDROMORPHONE) [Suspect]
     Route: 037

REACTIONS (3)
  - Accidental overdose [None]
  - Wrong drug administered [None]
  - Medical device complication [None]
